FAERS Safety Report 5142988-X (Version None)
Quarter: 2006Q4

REPORT INFORMATION
  Report Type: 
  Country: None (occurrence: None)
  Receive Date: 20061031
  Receipt Date: 20061031
  Transmission Date: 20070319
  Serious: Yes (Death)
  Sender: FDA-Public Use
  Company Number: None

PATIENT
  Age: 69 Year
  Sex: Female

DRUGS (1)
  1. DIGOXIN [Suspect]
     Dosage: 0.125 MG PO Q DAY
     Route: 048

REACTIONS (3)
  - GASTROINTESTINAL PERFORATION [None]
  - MULTI-ORGAN FAILURE [None]
  - THERAPEUTIC AGENT TOXICITY [None]
